FAERS Safety Report 21087164 (Version 1)
Quarter: 2022Q3

REPORT INFORMATION
  Report Type: Spontaneous
  Country: TR (occurrence: TR)
  Receive Date: 20220715
  Receipt Date: 20220715
  Transmission Date: 20221027
  Serious: Yes (Other)
  Sender: FDA-Public Use
  Company Number: TR-SUN PHARMACEUTICAL INDUSTRIES LTD-2022RR-344867

PATIENT
  Age: 46 Year
  Sex: Female

DRUGS (7)
  1. QUETIAPINE [Suspect]
     Active Substance: QUETIAPINE
     Indication: Depression
     Dosage: UNK
     Route: 065
  2. DULOXETINE [Suspect]
     Active Substance: DULOXETINE
     Indication: Depression
     Dosage: UNK
     Route: 065
  3. LAMOTRIGINE [Suspect]
     Active Substance: LAMOTRIGINE
     Indication: Depression
     Dosage: UNK
     Route: 065
  4. LITHIUM [Interacting]
     Active Substance: LITHIUM
     Indication: Depression
     Dosage: UNK
     Route: 065
  5. URSODIOL [Interacting]
     Active Substance: URSODIOL
     Indication: Nausea
     Dosage: 250 MILLIGRAM, DAILY
     Route: 065
  6. URSODIOL [Interacting]
     Active Substance: URSODIOL
     Indication: Abdominal pain
  7. LEVOTHYROXINE [Concomitant]
     Active Substance: LEVOTHYROXINE
     Indication: Hypothyroidism
     Dosage: 125 MICROGRAM, DAILY
     Route: 065

REACTIONS (4)
  - Drug ineffective [Unknown]
  - Malaise [Unknown]
  - Disturbance in social behaviour [Unknown]
  - Drug interaction [Unknown]
